FAERS Safety Report 5265139-X (Version None)
Quarter: 2007Q1

REPORT INFORMATION
  Report Type: 
  Country: None (occurrence: None)
  Receive Date: 20061121
  Receipt Date: 20060810
  Transmission Date: 20070707
  Serious: No
  Sender: FDA-Public Use
  Company Number: TPA2006A01324

PATIENT
  Age: 76 Year
  Sex: Female
  Weight: 61.2356 kg

DRUGS (8)
  1. ROZEREM [Suspect]
     Indication: INSOMNIA
     Dosage: 8 MG, QHS,PER ORAL
     Route: 048
     Dates: start: 20060809
  2. IMDUR [Concomitant]
  3. TOPROL-XL [Concomitant]
  4. ZETIA [Concomitant]
  5. NORVASC [Concomitant]
  6. LIPITOR [Concomitant]
  7. AVALIDE [Concomitant]
  8. ASPIRIN [Concomitant]

REACTIONS (4)
  - DIZZINESS [None]
  - INSOMNIA [None]
  - MENTAL IMPAIRMENT [None]
  - POOR QUALITY SLEEP [None]
